FAERS Safety Report 10069416 (Version 3)
Quarter: 2014Q2

REPORT INFORMATION
  Report Type: Spontaneous
  Country: JP (occurrence: JP)
  Receive Date: 20140410
  Receipt Date: 20140421
  Transmission Date: 20141212
  Serious: No
  Sender: FDA-Public Use
  Company Number: JP-AMGEN-JPNSP2013075169

PATIENT
  Age: 81 Year
  Sex: Female

DRUGS (2)
  1. PRALIA [Suspect]
     Indication: OSTEOPOROSIS
     Route: 058
     Dates: start: 20131008
  2. DENOTAS [Concomitant]

REACTIONS (1)
  - Hypocalcaemia [Recovering/Resolving]
